FAERS Safety Report 6303932-2 (Version None)
Quarter: 2009Q3

REPORT INFORMATION
  Report Type: 
  Country: None (occurrence: None)
  Receive Date: 20090810
  Receipt Date: 20090810
  Transmission Date: 20100115
  Serious: Yes (Other)
  Sender: FDA-Public Use
  Company Number: None

PATIENT
  Age: 63 Year
  Sex: Female
  Weight: 37.6486 kg

DRUGS (1)
  1. FORTEO [Suspect]
     Indication: OSTEOPOROSIS
     Dosage: 20MCG ONCE DAILEY ONCE DAILY INTRAOCULAR
     Route: 031
     Dates: start: 20050414, end: 20071010

REACTIONS (3)
  - IMPLANT SITE REACTION [None]
  - PARATHYROID DISORDER [None]
  - RESORPTION BONE INCREASED [None]
